FAERS Safety Report 9341552 (Version 1)
Quarter: 2013Q2

REPORT INFORMATION
  Report Type: Spontaneous
  Country: BR (occurrence: BR)
  Receive Date: 20130611
  Receipt Date: 20130611
  Transmission Date: 20140414
  Serious: Yes (Other)
  Sender: FDA-Public Use
  Company Number: BR-SANOFI-AVENTIS-2013SA057213

PATIENT
  Age: 67 Year
  Sex: Female
  Weight: 54 kg

DRUGS (6)
  1. LANTUS [Suspect]
     Indication: DIABETES MELLITUS
     Route: 058
     Dates: start: 2003
  2. LUDIOMIL [Concomitant]
     Indication: DEPRESSION
     Route: 048
     Dates: start: 2003
  3. HIGROTON [Concomitant]
     Indication: POLYURIA
     Route: 048
     Dates: start: 2003
  4. GLIFAGE [Concomitant]
     Indication: DIABETES MELLITUS
     Route: 048
  5. BENICAR [Concomitant]
     Indication: BLOOD PRESSURE
     Route: 048
     Dates: start: 2008
  6. SIMVASTATIN [Concomitant]
     Indication: BLOOD CHOLESTEROL
     Route: 048

REACTIONS (3)
  - Eye haemorrhage [Not Recovered/Not Resolved]
  - Visual acuity reduced [Not Recovered/Not Resolved]
  - Intervertebral disc protrusion [Not Recovered/Not Resolved]
